FAERS Safety Report 9701712 (Version 1)
Quarter: 2013Q4

REPORT INFORMATION
  Report Type: Spontaneous
  Country: US (occurrence: US)
  Receive Date: 20131119
  Receipt Date: 20131119
  Transmission Date: 20140711
  Serious: No
  Sender: FDA-Public Use
  Company Number: US-SAVIENT-2012S1000101

PATIENT
  Age: 49 Year
  Sex: Male
  Weight: 54.43 kg

DRUGS (19)
  1. KRYSTEXXA [Suspect]
     Indication: GOUT
     Route: 042
     Dates: start: 20120813, end: 20120813
  2. KRYSTEXXA [Suspect]
     Indication: GOUT
     Route: 042
     Dates: start: 20120830, end: 20120830
  3. KRYSTEXXA [Suspect]
     Indication: GOUT
     Route: 042
     Dates: start: 20120913, end: 20120913
  4. KRYSTEXXA [Suspect]
     Indication: GOUT
     Route: 042
     Dates: start: 20121001, end: 20121001
  5. ALLEGRA [Concomitant]
     Indication: ALLERGY PROPHYLAXIS
     Route: 048
     Dates: start: 20120812, end: 20120812
  6. ALLEGRA [Concomitant]
     Indication: ALLERGY PROPHYLAXIS
     Route: 048
     Dates: start: 20120813, end: 20120813
  7. ALLEGRA [Concomitant]
     Indication: ALLERGY PROPHYLAXIS
     Route: 048
     Dates: start: 20120829, end: 20120829
  8. ALLEGRA [Concomitant]
     Indication: ALLERGY PROPHYLAXIS
     Route: 048
     Dates: start: 20120830, end: 20120830
  9. ALLEGRA [Concomitant]
     Indication: ALLERGY PROPHYLAXIS
     Route: 048
     Dates: start: 20120912, end: 20120912
  10. ALLEGRA [Concomitant]
     Indication: ALLERGY PROPHYLAXIS
     Route: 048
     Dates: start: 20120913, end: 20120913
  11. ALLEGRA [Concomitant]
     Indication: ALLERGY PROPHYLAXIS
     Route: 048
     Dates: start: 20120930, end: 20120930
  12. ALLEGRA [Concomitant]
     Indication: ALLERGY PROPHYLAXIS
     Route: 048
     Dates: start: 20121001, end: 20121001
  13. SOLU-MEDROL [Concomitant]
     Indication: ALLERGY PROPHYLAXIS
     Route: 042
     Dates: start: 20120813, end: 20120813
  14. SOLU-MEDROL [Concomitant]
     Indication: ALLERGY PROPHYLAXIS
     Route: 042
     Dates: start: 20120830, end: 20120830
  15. SOLU-MEDROL [Concomitant]
     Indication: ALLERGY PROPHYLAXIS
     Route: 042
     Dates: start: 20120913, end: 20120913
  16. SOLU-MEDROL [Concomitant]
     Indication: ALLERGY PROPHYLAXIS
     Route: 042
     Dates: start: 20121001, end: 20121001
  17. ATENOLOL [Concomitant]
     Indication: HYPERTENSION
     Route: 048
  18. FENOFIBRATE [Concomitant]
     Indication: HYPERLIPIDAEMIA
  19. COLCRYS [Concomitant]
     Indication: GOUT
     Route: 048

REACTIONS (1)
  - Therapeutic response decreased [Unknown]
